FAERS Safety Report 11104240 (Version 1)
Quarter: 2015Q2

REPORT INFORMATION
  Report Type: Spontaneous
  Country: FR (occurrence: FR)
  Receive Date: 20150511
  Receipt Date: 20150511
  Transmission Date: 20150821
  Serious: Yes (Life-Threatening)
  Sender: FDA-Public Use
  Company Number: FR-TEVA-561049ISR

PATIENT
  Age: 53 Year
  Sex: Male

DRUGS (15)
  1. CORTANCYL [Concomitant]
     Active Substance: PREDNISONE
     Dosage: 1 MG/KG DAILY;
     Dates: start: 2014
  2. VISKEN [Concomitant]
     Active Substance: PINDOLOL
     Dosage: 15 MILLIGRAM DAILY; CHRONIC TREATMENT STARTED SINCE AT LEAST APRIL 2014
  3. PREDNISONE. [Concomitant]
     Active Substance: PREDNISONE
     Dosage: CHRONIC TREATMENT AT 20 OR 30 MG DAILY
  4. DIAMICRON [Concomitant]
     Active Substance: GLICLAZIDE
     Dosage: CHRONIC TREATMENT
  5. ETOPOSIDE MYLAN [Suspect]
     Active Substance: ETOPOSIDE
     Indication: LYMPHADENOPATHY
     Dosage: 172 MG FROM DAY 1 TO DAY 3 IN THE CONTEXT OFOF THE FIRST COURSE OF CHOEP PROTOCOL
     Route: 042
     Dates: start: 20150402, end: 20150404
  6. AUGMENTIN [Concomitant]
     Active Substance: AMOXICILLIN\CLAVULANATE POTASSIUM
     Dates: start: 201504
  7. DOXORUBICINE TEVA [Suspect]
     Active Substance: DOXORUBICIN
     Indication: LYMPHADENOPATHY
     Dosage: 86 MILLIGRAM DAILY; DAY 1 OF THE FIRST COURSE OF CHOEP PROTOCOL
     Route: 042
     Dates: start: 20150402, end: 20150402
  8. ZOPHREN [Suspect]
     Active Substance: ONDANSETRON
     Indication: PROPHYLAXIS OF NAUSEA AND VOMITING
     Dosage: 8 MILLIGRAM DAILY; DAY 1 OF THE FIRST COURSE OF CHOEP PROTOCOL
     Route: 042
     Dates: start: 20150402, end: 20150402
  9. VINCRISTINE HOSPIRA [Suspect]
     Active Substance: VINCRISTINE
     Indication: LYMPHADENOPATHY
     Dosage: 2 MILLIGRAM DAILY; DAY 1 OF THE FIRST COURSE OF CHOEP PROTOCOL
     Route: 042
     Dates: start: 20150402, end: 20150402
  10. CORTANCYL [Concomitant]
     Active Substance: PREDNISONE
     Dosage: FIRST COURSE OF CHOEP PROTOCOL
     Dates: start: 201504
  11. CIFLOX [Concomitant]
     Active Substance: CIPROFLOXACIN
     Dates: start: 201504
  12. MICARDIS [Concomitant]
     Active Substance: TELMISARTAN
     Dosage: 40 MILLIGRAM DAILY; CHRONIC TREATMENT
  13. ENDOXAN [Suspect]
     Active Substance: CYCLOPHOSPHAMIDE
     Indication: LYMPHADENOPATHY
     Dosage: 1290  DAILY; DAY 1 OF THE FIRST COURSE OF CHOEP PROTOCOL
     Route: 042
  14. GLUCOPHAGE [Concomitant]
     Active Substance: METFORMIN HYDROCHLORIDE
     Dosage: CHRONIC TREATMENT
  15. ATORVASTATINE [Concomitant]
     Active Substance: ATORVASTATIN
     Dosage: 10 MILLIGRAM DAILY; CHRONIC TREATMENT

REACTIONS (6)
  - Dysphagia [Unknown]
  - Febrile neutropenia [Unknown]
  - Hyperthermia [Unknown]
  - Abdominal pain [Unknown]
  - Microcytic anaemia [Unknown]
  - Thrombocytopenia [Unknown]

NARRATIVE: CASE EVENT DATE: 20150407
